FAERS Safety Report 7037956-7 (Version None)
Quarter: 2010Q4

REPORT INFORMATION
  Report Type: 
  Country: None (occurrence: None)
  Receive Date: 20101011
  Receipt Date: 20101005
  Transmission Date: 20110411
  Serious: Yes (Hospitalization, Other)
  Sender: FDA-Public Use
  Company Number: DE-AMGEN-QUU427481

PATIENT
  Sex: Female
  Weight: 63.8 kg

DRUGS (5)
  1. NEULASTA [Suspect]
     Indication: CHEMOTHERAPY
     Route: 058
     Dates: start: 20100619, end: 20100619
  2. TAXOTERE [Concomitant]
  3. CIPRO [Concomitant]
     Route: 048
     Dates: start: 20100622, end: 20100626
  4. EPIRUBICIN [Concomitant]
  5. CYCLOPHOSPHAMIDE [Concomitant]

REACTIONS (3)
  - AGRANULOCYTOSIS [None]
  - THROMBOSIS IN DEVICE [None]
  - WHITE BLOOD CELL COUNT DECREASED [None]
